FAERS Safety Report 18584682 (Version 1)
Quarter: 2020Q4

REPORT INFORMATION
  Report Type: Spontaneous
  Country: FR (occurrence: FR)
  Receive Date: 20201207
  Receipt Date: 20201207
  Transmission Date: 20210114
  Serious: Yes (Hospitalization)
  Sender: FDA-Public Use
  Company Number: FR-TEVA-2020-FR-1854744

PATIENT
  Age: 78 Year
  Sex: Female
  Weight: 48.4 kg

DRUGS (2)
  1. ELIQUIS [Interacting]
     Active Substance: APIXABAN
     Indication: ATRIAL FIBRILLATION
     Dosage: 2 DOSAGE FORMS
     Route: 048
     Dates: end: 20201107
  2. DULOXETINE BASE [Suspect]
     Active Substance: DULOXETINE
     Indication: MIXED ANXIETY AND DEPRESSIVE DISORDER
     Dosage: 60 MG
     Route: 048

REACTIONS (2)
  - Drug interaction [Recovered/Resolved]
  - Haemorrhagic stroke [Recovering/Resolving]

NARRATIVE: CASE EVENT DATE: 20201107
